FAERS Safety Report 22147263 (Version 4)
Quarter: 2024Q1

REPORT INFORMATION
  Report Type: Spontaneous
  Country: US (occurrence: US)
  Receive Date: 20230328
  Receipt Date: 20240220
  Transmission Date: 20240409
  Serious: No
  Sender: FDA-Public Use
  Company Number: US-PFIZER INC-PV202300055829

PATIENT
  Age: 75 Year
  Sex: Female

DRUGS (1)
  1. XELJANZ XR [Suspect]
     Active Substance: TOFACITINIB CITRATE
     Indication: Rheumatoid arthritis
     Dosage: 11 MG, DAILY
     Route: 048

REACTIONS (5)
  - Blood potassium increased [Recovering/Resolving]
  - Red blood cell sedimentation rate increased [Unknown]
  - Vitamin D increased [Unknown]
  - Inflammatory marker increased [Recovering/Resolving]
  - Mean cell volume increased [Unknown]
